FAERS Safety Report 24705012 (Version 1)
Quarter: 2024Q4

REPORT INFORMATION
  Report Type: Spontaneous
  Country: ES (occurrence: ES)
  Receive Date: 20241206
  Receipt Date: 20241206
  Transmission Date: 20250115
  Serious: Yes (Other)
  Sender: ROCHE
  Company Number: ES-ROCHE-10000148907

PATIENT
  Age: 65 Year

DRUGS (4)
  1. ATEZOLIZUMAB [Suspect]
     Active Substance: ATEZOLIZUMAB
     Indication: Transitional cell carcinoma
     Dosage: A TOTAL OF 15 CYCLES
     Route: 042
  2. MITOMYCIN C [Concomitant]
     Active Substance: MITOMYCIN
  3. PACLITAXEL [Concomitant]
     Active Substance: PACLITAXEL
  4. CISPLATIN [Concomitant]
     Active Substance: CISPLATIN

REACTIONS (4)
  - Vocal cord paralysis [Recovering/Resolving]
  - Palatal palsy [Recovering/Resolving]
  - Tonsillar neoplasm [Unknown]
  - Disease progression [Unknown]
